FAERS Safety Report 5885007-X (Version None)
Quarter: 2008Q3

REPORT INFORMATION
  Report Type: 
  Country: None (occurrence: None)
  Receive Date: 20080916
  Receipt Date: 20080908
  Transmission Date: 20090109
  Serious: Yes (Hospitalization)
  Sender: FDA-Public Use
  Company Number: DE-ABBOTT-08P-062-0473323-00

PATIENT
  Sex: Female

DRUGS (3)
  1. HUMIRA [Suspect]
     Indication: CROHN'S DISEASE
     Route: 058
     Dates: start: 20070927, end: 20080502
  2. AZATHIOPRINE [Concomitant]
     Indication: CROHN'S DISEASE
  3. CORTISONE ACETATE [Concomitant]
     Indication: CROHN'S DISEASE

REACTIONS (2)
  - GASTROINTESTINAL DISORDER [None]
  - SCAR [None]
